FAERS Safety Report 17967570 (Version 2)
Quarter: 2020Q3

REPORT INFORMATION
  Report Type: Spontaneous
  Country: DE (occurrence: DE)
  Receive Date: 20200701
  Receipt Date: 20200714
  Transmission Date: 20201103
  Serious: Yes (Death)
  Sender: FDA-Public Use
  Company Number: DE-ROCHE-2590969

PATIENT
  Sex: Male
  Weight: 75 kg

DRUGS (6)
  1. ROACTEMRA [Suspect]
     Active Substance: TOCILIZUMAB
     Route: 042
     Dates: start: 20200501
  2. NOREPINEPHRINE. [Concomitant]
     Active Substance: NOREPINEPHRINE
     Indication: COVID-19
     Dates: start: 202004
  3. OXYGEN. [Concomitant]
     Active Substance: OXYGEN
  4. ROACTEMRA [Suspect]
     Active Substance: TOCILIZUMAB
     Indication: COVID-19
     Dosage: 200 MG + 600 MG
     Route: 042
     Dates: start: 20200421, end: 20200422
  5. ROACTEMRA [Suspect]
     Active Substance: TOCILIZUMAB
     Indication: CYTOKINE STORM
     Dosage: 400 MG + 400 MG
     Route: 042
     Dates: start: 20200425
  6. ROACTEMRA [Suspect]
     Active Substance: TOCILIZUMAB
     Route: 042
     Dates: start: 20200428

REACTIONS (3)
  - Intentional product use issue [Unknown]
  - Cytokine storm [Fatal]
  - Off label use [Unknown]
